FAERS Safety Report 8746125 (Version 2)
Quarter: 2013Q1

REPORT INFORMATION
  Report Type: Spontaneous
  Country: JP (occurrence: JP)
  Receive Date: 20120827
  Receipt Date: 20130320
  Transmission Date: 20140127
  Serious: Yes (Disabling, Other)
  Sender: FDA-Public Use
  Company Number: PHHY2012JP073011

PATIENT
  Age: 69 Year
  Sex: Male
  Weight: 54 kg

DRUGS (13)
  1. PACETCOOL [Suspect]
     Indication: FEBRILE NEUTROPENIA
     Dosage: 02 G, TWO DIVIDED DOSES DAILY
     Route: 041
     Dates: start: 20120320, end: 20120323
  2. KYTRIL [Suspect]
     Indication: NAUSEA
     Dosage: 1 MG, UNK
     Route: 048
     Dates: start: 20120315, end: 20120326
  3. TAKEPRON [Concomitant]
     Indication: GASTRIC ULCER
     Dosage: 15 MG, UNK
     Route: 048
     Dates: start: 20120213
  4. MAGMITT [Concomitant]
     Indication: CONSTIPATION
     Dosage: 990 MG, UNK
     Route: 048
     Dates: start: 20110909
  5. PRIMPERAN [Concomitant]
     Indication: NAUSEA
     Dosage: 15 MG, UNK
     Route: 048
     Dates: start: 20120322, end: 20120420
  6. LENDORMIN [Concomitant]
     Indication: INSOMNIA
     Dosage: 0.25 MG, UNK
     Route: 048
     Dates: start: 20120210
  7. ZOMETA [Suspect]
     Indication: METASTASES TO BONE
     Dosage: 4 MG, PER ADMINISTRATION EVERY THREE TO FOUR WEEKS,
     Route: 041
     Dates: start: 20100901
  8. ZOMETA [Suspect]
     Dosage: 4 MG, PER ADMINISTRATION EVERY THREE TO FOUR WEEKS,
     Route: 041
     Dates: start: 20120326
  9. PACLITAXEL [Suspect]
     Indication: LUNG NEOPLASM MALIGNANT
     Dosage: 100 MG, UNK
     Route: 041
     Dates: start: 20120210
  10. PACLITAXEL [Suspect]
     Dosage: 100 MG, UNK
     Route: 041
     Dates: start: 20120309
  11. PACLITAXEL [Suspect]
     Dosage: 100 MG, UNK
     Route: 041
     Dates: start: 20120316, end: 20120323
  12. CARBOPLATIN [Suspect]
     Dosage: 520 MG, UNK
     Dates: start: 20120210
  13. CARBOPLATIN [Suspect]
     Dosage: 520 MG, UNK
     Dates: start: 20120309

REACTIONS (14)
  - Interstitial lung disease [Recovering/Resolving]
  - Lung infiltration [Unknown]
  - C-reactive protein increased [Unknown]
  - Cell marker increased [Unknown]
  - Gamma-glutamyltransferase increased [Unknown]
  - Neutrophil count increased [Unknown]
  - Monocyte count increased [Unknown]
  - Lymphocyte count decreased [Unknown]
  - Platelet count increased [Unknown]
  - Pyrexia [Unknown]
  - Cough [Not Recovered/Not Resolved]
  - Haemoglobin decreased [Unknown]
  - Haematocrit decreased [Unknown]
  - Blood urea increased [Unknown]
